FAERS Safety Report 6016926-1 (Version None)
Quarter: 2008Q4

REPORT INFORMATION
  Report Type: 
  Country: None (occurrence: None)
  Receive Date: 20081218
  Receipt Date: 20081216
  Transmission Date: 20090506
  Serious: Yes (Hospitalization)
  Sender: FDA-Public Use
  Company Number: WWISSUE-244

PATIENT

DRUGS (1)
  1. PHENYTOIN SODIUM [Suspect]
     Indication: CONVULSION
     Dosage: 1GM/IV
     Route: 042
     Dates: start: 20081215

REACTIONS (2)
  - MENTAL IMPAIRMENT [None]
  - RHABDOMYOLYSIS [None]
